FAERS Safety Report 4283793-6 (Version None)
Quarter: 2004Q1

REPORT INFORMATION
  Report Type: 
  Country: None (occurrence: None)
  Receive Date: 20040115
  Receipt Date: 20030422
  Transmission Date: 20041129
  Serious: Yes (Death)
  Sender: FDA-Public Use
  Company Number: NSADSS2003019156

PATIENT
  Age: 75 Year
  Sex: Female
  Weight: 76.2043 kg

DRUGS (1)
  1. DOXIL [Suspect]
     Indication: MALIGNANT HEPATOBILIARY NEOPLASM
     Dosage: 90 MG, INTRAVENOUS DRIP
     Route: 041
     Dates: start: 20030101, end: 20030311

REACTIONS (1)
  - CONDITION AGGRAVATED [None]
